FAERS Safety Report 25757623 (Version 2)
Quarter: 2025Q3

REPORT INFORMATION
  Report Type: Report from Study
  Country: EU (occurrence: EU)
  Receive Date: 20250903
  Receipt Date: 20250919
  Transmission Date: 20251021
  Serious: Yes (Other)
  Sender: MYLAN
  Company Number: EU-GSK-FR2025GSK009926

PATIENT
  Age: 51 Year
  Sex: Female
  Weight: 90 kg

DRUGS (6)
  1. PACLITAXEL [Suspect]
     Active Substance: PACLITAXEL
     Indication: Endometrial cancer
  2. PACLITAXEL [Suspect]
     Active Substance: PACLITAXEL
     Dates: start: 20241219, end: 20250808
  3. CARBOPLATIN [Suspect]
     Active Substance: CARBOPLATIN
     Indication: Endometrial cancer
     Dosage: 750 MILLIGRAM, Q3W
     Dates: start: 20241128, end: 20250808
  4. DOSTARLIMAB [Suspect]
     Active Substance: DOSTARLIMAB
     Indication: Endometrial cancer
     Dates: start: 20241128, end: 20250808
  5. DOSTARLIMAB [Suspect]
     Active Substance: DOSTARLIMAB
  6. TAXOL [Suspect]
     Active Substance: PACLITAXEL
     Indication: Product used for unknown indication

REACTIONS (3)
  - Immune-mediated lung disease [Unknown]
  - Interstitial lung disease [Recovering/Resolving]
  - Drug hypersensitivity [Not Recovered/Not Resolved]

NARRATIVE: CASE EVENT DATE: 20241128
